FAERS Safety Report 7605516 (Version 2)
Quarter: 2014Q2

REPORT INFORMATION
  Report Type: Report from Study
  Country: GR (occurrence: GR)
  Receive Date: 20100924
  Receipt Date: 20140507
  Transmission Date: 20141212
  Serious: Yes (Other)
  Sender: FDA-Public Use
  Company Number: GR-ROCHE-727629

PATIENT
  Sex: Female

DRUGS (4)
  1. CAPECITABINE [Suspect]
     Indication: COLORECTAL CANCER METASTATIC
     Dosage: ON DAYS 1-7 EVERY TWO WEEK FOR 134 CYCLES.
     Route: 048
  2. CAPECITABINE [Suspect]
     Dosage: DAY 1-7
     Route: 048
  3. BEVACIZUMAB [Suspect]
     Indication: COLORECTAL CANCER METASTATIC
     Dosage: OVER 60-90 MINUTES
     Route: 042
  4. L-OHP [Suspect]
     Indication: COLORECTAL CANCER METASTATIC
     Dosage: ON DAY ONE FOR 134 CYCLES, OVER 240 MINUTES ON DAY 1
     Route: 042

REACTIONS (1)
  - Intestinal perforation [Unknown]
